FAERS Safety Report 19811592 (Version 2)
Quarter: 2022Q4

REPORT INFORMATION
  Report Type: Spontaneous
  Country: US (occurrence: US)
  Receive Date: 20210909
  Receipt Date: 20221027
  Transmission Date: 20230113
  Serious: No
  Sender: FDA-Public Use
  Company Number: US-BOEHRINGERINGELHEIM-2021-BI-126085

PATIENT
  Age: 82 Year
  Sex: Male

DRUGS (1)
  1. COMBIVENT [Suspect]
     Active Substance: ALBUTEROL SULFATE\IPRATROPIUM BROMIDE
     Indication: Product used for unknown indication

REACTIONS (4)
  - Lower respiratory tract infection [Unknown]
  - Gait inability [Unknown]
  - Angiopathy [Unknown]
  - Back disorder [Unknown]

NARRATIVE: CASE EVENT DATE: 20210909
